FAERS Safety Report 9373426 (Version 2)
Quarter: 2013Q3

REPORT INFORMATION
  Report Type: Report from Study
  Country: US (occurrence: US)
  Receive Date: 20130627
  Receipt Date: 20130718
  Transmission Date: 20140515
  Serious: Yes (Hospitalization)
  Sender: FDA-Public Use
  Company Number: US-ACTELION-A-US2013-84750

PATIENT
  Age: 20 Year
  Sex: Female

DRUGS (1)
  1. VELETRI [Suspect]
     Indication: PULMONARY ARTERIAL HYPERTENSION
     Dosage: 161 NG/KG, PER MIN
     Route: 042
     Dates: start: 20111006, end: 20130612

REACTIONS (2)
  - Menorrhagia [Unknown]
  - Blood count abnormal [Unknown]
